FAERS Safety Report 9070620 (Version 1)
Quarter: 2013Q1

REPORT INFORMATION
  Report Type: Report from Study
  Country: US (occurrence: US)
  Receive Date: 20130129
  Receipt Date: 20130129
  Transmission Date: 20140127
  Serious: No
  Sender: FDA-Public Use
  Company Number: US-ABBOTT-12P-163-0925127-00

PATIENT
  Sex: Female
  Weight: 70.37 kg

DRUGS (10)
  1. HUMIRA 40 MG/0.8 ML PEN [Suspect]
     Indication: RHEUMATOID ARTHRITIS
     Dates: start: 201202
  2. TRAMADOL [Concomitant]
     Indication: PAIN
  3. MISOPROSTOL [Concomitant]
     Indication: PROPHYLAXIS AGAINST GASTROINTESTINAL ULCER
  4. NEXIUM [Concomitant]
     Indication: PROPHYLAXIS AGAINST GASTROINTESTINAL ULCER
  5. SYNTHROID [Concomitant]
     Indication: HYPOTHYROIDISM
  6. AMLODIPINE BENAZEPRIL [Concomitant]
     Indication: HYPERTENSION
  7. HYDROCHLOROTHIAZIDE [Concomitant]
     Indication: HYPERTENSION
  8. CYMBALTA [Concomitant]
     Indication: PAIN
  9. FLEXERIL [Concomitant]
     Indication: FEELING OF RELAXATION
     Dosage: AT BEDTIME
  10. ALBUTEROL [Concomitant]
     Indication: ASTHMA

REACTIONS (10)
  - Cystitis [Recovering/Resolving]
  - Cystitis noninfective [Unknown]
  - Erythema [Unknown]
  - Blood urine present [Recovering/Resolving]
  - Pruritus [Recovered/Resolved]
  - Pruritus [Recovered/Resolved]
  - Micturition urgency [Recovering/Resolving]
  - Pollakiuria [Recovering/Resolving]
  - Sensation of pressure [Recovering/Resolving]
  - Dysuria [Recovering/Resolving]
